FAERS Safety Report 9066069 (Version 1)
Quarter: 2013Q1

REPORT INFORMATION
  Report Type: Report from Study
  Country: US (occurrence: US)
  Receive Date: 20130214
  Receipt Date: 20130214
  Transmission Date: 20140127
  Serious: Yes (Other)
  Sender: FDA-Public Use
  Company Number: US-SANOFI-AVENTIS-200320550US

PATIENT
  Age: 56 Year
  Sex: Female
  Weight: 77.11 kg

DRUGS (7)
  1. DOCETAXEL [Suspect]
     Indication: BREAST CANCER
     Dosage: DOSE AS USED: 132-106 MG
     Route: 042
     Dates: start: 20010920, end: 20020108
  2. DOCETAXEL [Suspect]
     Indication: BREAST CANCER
     Dosage: DOSE AS USED: 132-106 MG
     Route: 042
     Dates: end: 20020227
  3. DOXORUBICIN [Suspect]
     Indication: BREAST CANCER
     Dosage: DOSE AS USED: 88-70 MG
     Route: 042
     Dates: start: 20010920, end: 20020108
  4. DOXORUBICIN [Suspect]
     Indication: BREAST CANCER
     Dosage: DOSE AS USED: 88-70 MG
     Route: 042
     Dates: end: 20020227
  5. CYCLOPHOSPHAMIDE [Suspect]
     Indication: BREAST CANCER
     Dosage: DOSE AS USED: 880-704 MG
     Route: 042
     Dates: start: 20010920, end: 20020108
  6. CYCLOPHOSPHAMIDE [Suspect]
     Indication: BREAST CANCER
     Dosage: DOSE AS USED: 880-704 MG
     Route: 042
     Dates: end: 20020227
  7. NO MENTION OF CONCOMITANT DRUG [Concomitant]

REACTIONS (1)
  - Myelodysplastic syndrome [Unknown]
